FAERS Safety Report 13352038 (Version 1)
Quarter: 2017Q1

REPORT INFORMATION
  Report Type: Spontaneous
  Country: US (occurrence: US)
  Receive Date: 20170320
  Receipt Date: 20170320
  Transmission Date: 20170429
  Serious: Yes (Other)
  Sender: FDA-Public Use
  Company Number: US-SA-2016SA069167

PATIENT
  Age: 66 Year
  Sex: Female

DRUGS (1)
  1. NASACORT ALLERGY 24HR [Suspect]
     Active Substance: TRIAMCINOLONE ACETONIDE
     Indication: ALLERGIC SINUSITIS
     Dosage: START DATE OVER A YEAR?DOSE 1 PUFF EACH NOSTRIL DOSE:1 PUFF(S)
     Route: 045
     Dates: end: 20160405

REACTIONS (2)
  - Headache [Unknown]
  - Cataract [Unknown]
